FAERS Safety Report 8987558 (Version 2)
Quarter: 2014Q2

REPORT INFORMATION
  Report Type: Spontaneous
  Country: US (occurrence: US)
  Receive Date: 20121227
  Receipt Date: 20131018
  Transmission Date: 20141212
  Serious: Yes (Hospitalization, Other)
  Sender: FDA-Public Use
  Company Number: US-PFIZER INC-2012328016

PATIENT
  Age: 73 Year
  Sex: Male
  Weight: 113.38 kg

DRUGS (8)
  1. ATENOLOL [Suspect]
     Dosage: UNK
  2. NEXIUM [Suspect]
     Indication: GASTROOESOPHAGEAL REFLUX DISEASE
     Dosage: 40 MG, 2X/DAY
     Route: 048
     Dates: start: 1992
  3. MECLIZINE [Concomitant]
     Indication: DIZZINESS
     Dosage: 0.5 MG, UNK
     Dates: start: 2008
  4. ENAPRIL [Concomitant]
     Dosage: UNK
  5. LIPITOR [Concomitant]
     Dosage: UNK
     Route: 065
  6. ZETIA [Concomitant]
     Dosage: 10 MG, UNK
     Route: 065
     Dates: start: 2006
  7. PRADAXA [Concomitant]
     Dosage: 150 MG, 2X/DAY
     Route: 065
     Dates: start: 201211
  8. SOTALOL [Concomitant]
     Dosage: UNK
     Route: 065
     Dates: start: 201211

REACTIONS (3)
  - Atrial fibrillation [Unknown]
  - Cardiac disorder [Unknown]
  - Off label use [Not Recovered/Not Resolved]
